FAERS Safety Report 8983400 (Version 2)
Quarter: 2012Q4

REPORT INFORMATION
  Report Type: Report from Study
  Country: BE (occurrence: BE)
  Receive Date: 20121224
  Receipt Date: 20121228
  Transmission Date: 20130627
  Serious: Yes (Other)
  Sender: FDA-Public Use
  Company Number: BE-GENZYME-CLOF-1002438

PATIENT
  Age: 50 Year
  Sex: Male
  Weight: 75.6 kg

DRUGS (6)
  1. EVOLTRA [Suspect]
     Indication: ACUTE MYELOID LEUKAEMIA
     Dosage: 19.1 mg, UNK
     Route: 042
     Dates: start: 20120915
  2. ARTANE [Suspect]
     Indication: PARKINSON^S DISEASE
     Dosage: 2 mg, tid
     Route: 048
     Dates: start: 20121211
  3. CYTARABINE [Suspect]
     Indication: ACUTE MYELOID LEUKAEMIA
     Dosage: 1910 mg, bid
     Route: 042
     Dates: start: 20120914
  4. CYCLOPHOSPHAMIDE [Suspect]
     Indication: ACUTE MYELOID LEUKAEMIA
     Dosage: 4440 mg, UNK
     Route: 042
     Dates: start: 20121215
  5. AMSACRINE [Suspect]
     Indication: ACUTE MYELOID LEUKAEMIA
     Dosage: 230 mg, UNK
     Route: 042
     Dates: start: 20120917
  6. MESNA [Concomitant]
     Indication: THERAPEUTIC PROCEDURE
     Dosage: 1480 mg, UNK
     Route: 042
     Dates: start: 20121215

REACTIONS (1)
  - Acute psychosis [Recovered/Resolved]
